FAERS Safety Report 9861787 (Version 1)
Quarter: 2014Q1

REPORT INFORMATION
  Report Type: Spontaneous
  Country: US (occurrence: US)
  Receive Date: 20140203
  Receipt Date: 20140203
  Transmission Date: 20141002
  Serious: No
  Sender: FDA-Public Use
  Company Number: US-BAYER-2014-016782

PATIENT
  Age: 80 Year
  Sex: Female
  Weight: 57 kg

DRUGS (3)
  1. ALEVE CAPLET [Suspect]
     Indication: ARTHRITIS
     Dosage: 1 DF, QD WITH FOOD
     Route: 048
     Dates: start: 20140128
  2. LIPITOR [Concomitant]
  3. CENTRUM SILVER [Concomitant]

REACTIONS (1)
  - Abdominal discomfort [None]
